FAERS Safety Report 9991625 (Version 2)
Quarter: 2014Q1

REPORT INFORMATION
  Report Type: Report from Study
  Country: JP (occurrence: JP)
  Receive Date: 20140310
  Receipt Date: 20140314
  Transmission Date: 20141002
  Serious: Yes (Other)
  Sender: FDA-Public Use
  Company Number: JP-JNJFOC-20140217664

PATIENT
  Age: 15 Year
  Sex: Female

DRUGS (1)
  1. FINIBAX [Suspect]
     Indication: PERITONITIS
     Route: 041
     Dates: start: 20131103, end: 20131114

REACTIONS (1)
  - Pancreatitis chronic [Recovering/Resolving]
